FAERS Safety Report 10084273 (Version 1)
Quarter: 2014Q2

REPORT INFORMATION
  Report Type: Spontaneous
  Country: CN (occurrence: CN)
  Receive Date: 20140417
  Receipt Date: 20140417
  Transmission Date: 20141212
  Serious: Yes (Other)
  Sender: FDA-Public Use
  Company Number: CN-PFIZER INC-2014104407

PATIENT
  Age: 80 Year
  Sex: Male

DRUGS (2)
  1. CARDURA XL [Suspect]
     Indication: BENIGN PROSTATIC HYPERPLASIA
     Dosage: 1 DF, 1X/DAY
     Route: 048
     Dates: start: 20130926, end: 20131001
  2. DOPAMINE [Concomitant]
     Dosage: UNK

REACTIONS (1)
  - Cardiac failure [Recovering/Resolving]
